FAERS Safety Report 7046929-X (Version None)
Quarter: 2010Q4

REPORT INFORMATION
  Report Type: 
  Country: None (occurrence: None)
  Receive Date: 20101015
  Receipt Date: 20101012
  Transmission Date: 20110411
  Serious: Yes (Other)
  Sender: FDA-Public Use
  Company Number: US-BRISTOL-MYERS SQUIBB COMPANY-15299084

PATIENT
  Age: 35 Year
  Sex: Female

DRUGS (3)
  1. ABILIFY [Suspect]
     Indication: DEPRESSION
     Dosage: 2MG/DAY FROM 09JUL2010
     Route: 048
     Dates: start: 20100709
  2. ABILIFY [Suspect]
     Indication: ANXIETY
     Dosage: 2MG/DAY FROM 09JUL2010
     Route: 048
     Dates: start: 20100709
  3. EFFEXOR XR [Suspect]
     Indication: VULVOVAGINAL PAIN
     Dates: start: 20010101

REACTIONS (5)
  - DRY EYE [None]
  - DRY MOUTH [None]
  - MYDRIASIS [None]
  - NIGHT BLINDNESS [None]
  - VISION BLURRED [None]
